FAERS Safety Report 20393882 (Version 2)
Quarter: 2022Q1

REPORT INFORMATION
  Report Type: Spontaneous
  Country: US (occurrence: US)
  Receive Date: 20220129
  Receipt Date: 20220202
  Transmission Date: 20220423
  Serious: Yes (Other)
  Sender: FDA-Public Use
  Company Number: US-TEVA-2022-US-2001934

PATIENT
  Age: 13 Year
  Sex: Female

DRUGS (1)
  1. EPINEPHRINE [Suspect]
     Active Substance: EPINEPHRINE
     Indication: Anaphylactic reaction
     Dosage: 0.3/0.3 MG/ML
     Route: 065

REACTIONS (2)
  - Device malfunction [Unknown]
  - Fear of injection [Unknown]

NARRATIVE: CASE EVENT DATE: 20220120
